FAERS Safety Report 24452078 (Version 1)
Quarter: 2024Q4

REPORT INFORMATION
  Report Type: Spontaneous
  Country: CZ (occurrence: CZ)
  Receive Date: 20241017
  Receipt Date: 20241017
  Transmission Date: 20250115
  Serious: Yes (Hospitalization, Other)
  Sender: TEVA
  Company Number: CZ-TEVA-VS-3253140

PATIENT
  Age: 71 Year
  Sex: Female

DRUGS (3)
  1. PEMETREXED [Suspect]
     Active Substance: PEMETREXED
     Indication: Lung adenocarcinoma
     Dosage: 4 CYCLES
     Route: 065
     Dates: start: 202212, end: 202303
  2. CARBOPLATIN [Suspect]
     Active Substance: CARBOPLATIN
     Indication: Lung adenocarcinoma
     Route: 065
     Dates: start: 202212, end: 202303
  3. PEMBROLIZUMAB [Suspect]
     Active Substance: PEMBROLIZUMAB
     Indication: Lung adenocarcinoma
     Route: 065
     Dates: start: 202212

REACTIONS (5)
  - Toxicity to various agents [Recovering/Resolving]
  - Pancytopenia [Unknown]
  - Immune-mediated adverse reaction [Unknown]
  - Hypothyroidism [Recovering/Resolving]
  - Renal impairment [Recovering/Resolving]
